FAERS Safety Report 24380953 (Version 3)
Quarter: 2024Q4

REPORT INFORMATION
  Report Type: Spontaneous
  Country: US (occurrence: US)
  Receive Date: 20240930
  Receipt Date: 20241029
  Transmission Date: 20250115
  Serious: No
  Sender: MERCK
  Company Number: US-009507513-2409USA003469

PATIENT
  Sex: Female

DRUGS (6)
  1. WINREVAIR [Suspect]
     Active Substance: SOTATERCEPT-CSRK
     Indication: Product used for unknown indication
     Dosage: UNK
     Route: 058
     Dates: start: 2024
  2. REMODULIN [Suspect]
     Active Substance: TREPROSTINIL
     Indication: Pulmonary arterial hypertension
     Dosage: 0.0194 MICROGRAM PER KILOGRAM. FREQUENCY: CONTINUOUS
     Route: 058
     Dates: start: 202402, end: 2024
  3. REMODULIN [Suspect]
     Active Substance: TREPROSTINIL
     Dosage: 0.02048 MICROGRAM PER KILOGRAM. FREQUENCY: CONTINUOUS
     Route: 058
     Dates: start: 2024
  4. AMBRISENTAN [Suspect]
     Active Substance: AMBRISENTAN
     Indication: Pulmonary arterial hypertension
     Dosage: 5 MILLIGRAM
     Route: 048
     Dates: start: 202405, end: 20240603
  5. AMBRISENTAN [Suspect]
     Active Substance: AMBRISENTAN
     Dosage: 10 MILLIGRAM
     Route: 048
     Dates: start: 20240603
  6. TADALAFIL [Concomitant]
     Active Substance: TADALAFIL

REACTIONS (5)
  - Haemoglobin increased [Unknown]
  - Platelet count decreased [Unknown]
  - Diarrhoea [Not Recovered/Not Resolved]
  - Epistaxis [Recovered/Resolved]
  - Increased tendency to bruise [Unknown]

NARRATIVE: CASE EVENT DATE: 20240101
